FAERS Safety Report 26196680 (Version 1)
Quarter: 2025Q4

REPORT INFORMATION
  Report Type: Other
  Country: EU (occurrence: EU)
  Receive Date: 20251224
  Receipt Date: 20251224
  Transmission Date: 20260118
  Serious: Yes (Other)
  Sender: Integrated Therapeutic Solutions
  Company Number: EU-Integrated Therapeutic Solutions Inc.-2190430

PATIENT
  Age: 38 Year
  Sex: Female

DRUGS (4)
  1. PYLERA [Suspect]
     Active Substance: BISMUTH SUBCITRATE POTASSIUM\METRONIDAZOLE\TETRACYCLINE HYDROCHLORIDE
     Indication: Helicobacter infection
     Route: 061
     Dates: start: 20240826, end: 20240826
  2. METRONIDAZOLE [Suspect]
     Active Substance: METRONIDAZOLE
     Route: 061
     Dates: start: 20240827
  3. AMOXICILLIN [Suspect]
     Active Substance: AMOXICILLIN
     Route: 061
     Dates: start: 20240827, end: 20240827
  4. ESOMEPRAZOLE. [Suspect]
     Active Substance: ESOMEPRAZOLE MAGNESIUM
     Route: 061
     Dates: start: 20240826, end: 20240827

REACTIONS (2)
  - Dyspnoea [Recovered/Resolved]
  - Lip oedema [Recovered/Resolved]

NARRATIVE: CASE EVENT DATE: 20240827
